FAERS Safety Report 6969503-X (Version None)
Quarter: 2010Q3

REPORT INFORMATION
  Report Type: 
  Country: None (occurrence: None)
  Receive Date: 20100907
  Receipt Date: 20100907
  Transmission Date: 20110219
  Serious: Yes (Death)
  Sender: FDA-Public Use
  Company Number: None

PATIENT
  Sex: Female

DRUGS (1)
  1. PACLITAXEL [Suspect]
     Dosage: 340MG
     Dates: start: 20100630, end: 20100630

REACTIONS (3)
  - BURNING SENSATION [None]
  - DYSPNOEA [None]
  - PULSE ABSENT [None]
